FAERS Safety Report 10457079 (Version 1)
Quarter: 2014Q3

REPORT INFORMATION
  Report Type: Spontaneous
  Country: US (occurrence: None)
  Receive Date: 20140902
  Receipt Date: 20140902
  Transmission Date: 20150326
  Serious: Yes (Other)
  Sender: FDA-Public Use
  Company Number: 14MRZ-00172

PATIENT
  Sex: Male
  Weight: 60 kg

DRUGS (1)
  1. XEOMIN [Suspect]
     Active Substance: INCOBOTULINUMTOXINA
     Indication: OESOPHAGEAL ACHALASIA
     Dosage: SLIGHTLY LESS THAN THE FULL 100U PLANNED, IV.
     Route: 042
     Dates: start: 20140424, end: 20140424

REACTIONS (4)
  - Diarrhoea [None]
  - Medication error [None]
  - Off label use [None]
  - Dysphagia [None]

NARRATIVE: CASE EVENT DATE: 20140424
